FAERS Safety Report 6680024-4 (Version None)
Quarter: 2010Q2

REPORT INFORMATION
  Report Type: 
  Country: None (occurrence: None)
  Receive Date: 20100413
  Receipt Date: 20100408
  Transmission Date: 20101027
  Serious: No
  Sender: FDA-Public Use
  Company Number: DE-PFIZER INC-2010032628

PATIENT
  Age: 48 Year
  Sex: Male

DRUGS (2)
  1. SORTIS [Suspect]
     Indication: HYPERCHOLESTEROLAEMIA
     Dosage: UNK
     Route: 048
     Dates: start: 20091201
  2. SORTIS [Suspect]
     Indication: VASCULAR CALCIFICATION

REACTIONS (1)
  - LIPOPROTEIN (A) INCREASED [None]
